FAERS Safety Report 18599334 (Version 3)
Quarter: 2020Q4

REPORT INFORMATION
  Report Type: Report from Study
  Country: US (occurrence: US)
  Receive Date: 20201210
  Receipt Date: 20201223
  Transmission Date: 20210114
  Serious: Yes (Other)
  Sender: FDA-Public Use
  Company Number: US-VIIV HEALTHCARE LIMITED-US2020GSK243863

PATIENT
  Sex: Male
  Weight: 2.4 kg

DRUGS (2)
  1. DOLUTEGRAVIR [Suspect]
     Active Substance: DOLUTEGRAVIR
     Indication: HIV INFECTION
     Dosage: 1 DF (TAB/CAPS), QD
     Route: 064
  2. DESCOVY [Suspect]
     Active Substance: EMTRICITABINE\TENOFOVIR ALAFENAMIDE FUMARATE
     Indication: HIV INFECTION
     Dosage: 1 DF (TAB/CAPS), QD
     Route: 064

REACTIONS (3)
  - Foetal exposure during pregnancy [Unknown]
  - Low birth weight baby [Unknown]
  - Foetal growth restriction [Unknown]
